FAERS Safety Report 4383547-6 (Version None)
Quarter: 2004Q2

REPORT INFORMATION
  Report Type: 
  Country: None (occurrence: None)
  Receive Date: 20040623
  Receipt Date: 20040504
  Transmission Date: 20050107
  Serious: Yes (Death)
  Sender: FDA-Public Use
  Company Number: 200411804FR

PATIENT
  Age: 70 Year
  Sex: Female

DRUGS (6)
  1. SPECIAFOLDINE [Suspect]
  2. LASILIX [Suspect]
     Indication: CARDIAC FAILURE
     Route: 048
     Dates: end: 20040411
  3. ALDACTONE [Suspect]
     Indication: CARDIAC FAILURE
     Route: 048
     Dates: end: 20040411
  4. SERESTA [Suspect]
     Route: 048
  5. TRACLEER [Suspect]
     Indication: PULMONARY HYPERTENSION
     Route: 048
     Dates: start: 20040201, end: 20040411
  6. CALCIUM WITH VITAMIN D [Concomitant]

REACTIONS (6)
  - CARDIAC ARREST [None]
  - CARDIAC FAILURE [None]
  - CHEST PAIN [None]
  - HOT FLUSH [None]
  - MALAISE [None]
  - SHOCK [None]
